FAERS Safety Report 8165221-3 (Version None)
Quarter: 2012Q1

REPORT INFORMATION
  Report Type: 
  Country: None (occurrence: None)
  Receive Date: 20120227
  Receipt Date: 20120222
  Transmission Date: 20120608
  Serious: No
  Sender: FDA-Public Use
  Company Number: US-PFIZER INC-2012048014

PATIENT
  Sex: Female
  Weight: 74.376 kg

DRUGS (2)
  1. PREMARIN [Suspect]
     Indication: VULVOVAGINAL DRYNESS
     Dosage: 1.5 MG, 2X/WEEK
     Route: 067
  2. PREMARIN [Suspect]
     Dosage: 1 MG, 3XWEEK
     Dates: start: 20110101, end: 20120212

REACTIONS (1)
  - MIGRAINE [None]
